FAERS Safety Report 18758356 (Version 2)
Quarter: 2021Q1

REPORT INFORMATION
  Report Type: Spontaneous
  Country: GB (occurrence: GB)
  Receive Date: 20210120
  Receipt Date: 20210122
  Transmission Date: 20210419
  Serious: Yes (Life-Threatening, Hospitalization, Disabling, Other)
  Sender: FDA-Public Use
  Company Number: GB-AUROBINDO-AUR-APL-2021-001952

PATIENT
  Age: 51 Year
  Sex: Male
  Weight: 92.52 kg

DRUGS (4)
  1. MIRTAZAPINE. [Suspect]
     Active Substance: MIRTAZAPINE
     Indication: DEPRESSION SUICIDAL
     Dosage: UNK (MAXIMUM DOSAGE)
     Route: 048
     Dates: start: 20130515, end: 20131215
  2. VENLAFAXINE [Suspect]
     Active Substance: VENLAFAXINE HYDROCHLORIDE
     Indication: DEPRESSION SUICIDAL
     Dosage: UNK (MAXIMUM DOSAGE)
     Route: 048
     Dates: start: 20131215, end: 20140615
  3. IMIPRAMINE [Suspect]
     Active Substance: IMIPRAMINE
     Indication: PRODUCT USED FOR UNKNOWN INDICATION
     Dosage: UNK (MAXIMUM DOSAGE)
     Route: 048
     Dates: start: 20130520, end: 20170405
  4. LITHIUM CARBONATE. [Suspect]
     Active Substance: LITHIUM CARBONATE
     Indication: DEPRESSION SUICIDAL
     Dosage: UNK (MAXIMUM DOSAGE)
     Route: 048
     Dates: start: 20140615, end: 20151215

REACTIONS (2)
  - Akathisia [Unknown]
  - Suicidal ideation [Unknown]

NARRATIVE: CASE EVENT DATE: 20130523
